FAERS Safety Report 5218216-3 (Version None)
Quarter: 2007Q1

REPORT INFORMATION
  Report Type: 
  Country: None (occurrence: None)
  Receive Date: 20061130
  Receipt Date: 20060815
  Transmission Date: 20070707
  Serious: Yes (Other)
  Sender: FDA-Public Use
  Company Number: US200511001961

PATIENT
  Age: 23 Year
  Sex: Male
  Weight: 127 kg

DRUGS (1)
  1. ZYPREXA [Suspect]
     Indication: DEPRESSION
     Dosage: 15 MG, ORAL
     Route: 048
     Dates: start: 20010319, end: 20020901

REACTIONS (3)
  - DIABETES MELLITUS NON-INSULIN-DEPENDENT [None]
  - METABOLIC DISORDER [None]
  - WEIGHT INCREASED [None]
